FAERS Safety Report 25032591 (Version 2)
Quarter: 2025Q1

REPORT INFORMATION
  Report Type: Spontaneous
  Country: US (occurrence: US)
  Receive Date: 20250303
  Receipt Date: 20250314
  Transmission Date: 20250409
  Serious: Yes (Death, Hospitalization)
  Sender: TEVA
  Company Number: US-TEVA-VS-3304189

PATIENT
  Age: 43 Year
  Sex: Male

DRUGS (3)
  1. CAPECITABINE [Suspect]
     Active Substance: CAPECITABINE
     Indication: Rectal adenocarcinoma
     Route: 048
  2. OXALIPLATIN [Concomitant]
     Active Substance: OXALIPLATIN
     Indication: Rectal adenocarcinoma
     Route: 042
  3. URIDINE TRIACETATE [Suspect]
     Active Substance: URIDINE TRIACETATE
     Indication: Dihydropyrimidine dehydrogenase deficiency
     Dosage: THROUGH NASOGASTRIC TUBE
     Route: 050

REACTIONS (15)
  - Septic shock [Fatal]
  - Diabetic ketoacidosis [Unknown]
  - Dysphagia [Unknown]
  - Drug ineffective [Fatal]
  - Neutropenia [Fatal]
  - Toxicity to various agents [Fatal]
  - Asthenia [Unknown]
  - Decreased appetite [Unknown]
  - Vomiting [Unknown]
  - Abdominal pain [Unknown]
  - Rash [Unknown]
  - Oral pain [Unknown]
  - Nausea [Unknown]
  - Diarrhoea [Unknown]
  - Thrombocytopenia [Unknown]
